FAERS Safety Report 21870950 (Version 1)
Quarter: 2023Q1

REPORT INFORMATION
  Report Type: Spontaneous
  Country: US (occurrence: None)
  Receive Date: 20230115
  Receipt Date: 20230115
  Transmission Date: 20230418
  Serious: Yes (Disabling)
  Sender: FDA-Public Use
  Company Number: None

PATIENT
  Age: 59 Year
  Sex: Male
  Weight: 94.5 kg

DRUGS (6)
  1. LAGEVRIO [Suspect]
     Active Substance: MOLNUPIRAVIR
     Indication: COVID-19
     Dosage: OTHER QUANTITY : 4 CAPSULE(S);?FREQUENCY : TWICE A DAY;?
     Route: 048
     Dates: start: 20230113, end: 20230115
  2. LIPITOR [Concomitant]
     Active Substance: ATORVASTATIN CALCIUM
  3. FORTESTA [Concomitant]
     Active Substance: TESTOSTERONE
  4. FLECANIDE ACETATE [Concomitant]
  5. DIALTAP [Concomitant]
  6. ASPIRIN [Concomitant]
     Active Substance: ASPIRIN

REACTIONS (5)
  - Drug interaction [None]
  - Paranasal sinus hyposecretion [None]
  - Taste disorder [None]
  - Dry throat [None]
  - Cough [None]

NARRATIVE: CASE EVENT DATE: 20230114
